FAERS Safety Report 8116135-6 (Version None)
Quarter: 2012Q1

REPORT INFORMATION
  Report Type: 
  Country: None (occurrence: None)
  Receive Date: 20120201
  Receipt Date: 20120120
  Transmission Date: 20120608
  Serious: Yes (Other)
  Sender: FDA-Public Use
  Company Number: 2012SP003912

PATIENT
  Age: 43 Year
  Sex: Male

DRUGS (3)
  1. NEDOCROMIL SODIUM (ALOCRIL) [Concomitant]
  2. DIPROSONE [Suspect]
     Indication: ECZEMA
     Dosage: 100 GM;QW;TOP
     Route: 061
  3. LATANOPROST [Concomitant]

REACTIONS (6)
  - ECZEMA [None]
  - GLAUCOMA [None]
  - VISUAL FIELD DEFECT [None]
  - OPTIC NERVE CUPPING [None]
  - CONDITION AGGRAVATED [None]
  - VISUAL ACUITY REDUCED [None]
